FAERS Safety Report 10061153 (Version 1)
Quarter: 2014Q2

REPORT INFORMATION
  Report Type: Spontaneous
  Country: NL (occurrence: NL)
  Receive Date: 20140407
  Receipt Date: 20140407
  Transmission Date: 20141212
  Serious: Yes (Hospitalization)
  Sender: FDA-Public Use
  Company Number: NL-AMGEN INC.-NLDSP2011070971

PATIENT
  Age: 84 Year
  Sex: Female

DRUGS (2)
  1. NEULASTA [Suspect]
     Indication: PROPHYLAXIS
     Dosage: 6 MG, 1X4W
     Route: 058
     Dates: start: 20101217, end: 20110926
  2. ARANESP [Suspect]
     Indication: ANAEMIA
     Dosage: 500 MUG, 1X4W
     Route: 058
     Dates: start: 20110311

REACTIONS (1)
  - Hospitalisation [Recovered/Resolved]
